FAERS Safety Report 20495256 (Version 1)
Quarter: 2022Q1

REPORT INFORMATION
  Report Type: Spontaneous
  Country: MA (occurrence: MA)
  Receive Date: 20220221
  Receipt Date: 20220221
  Transmission Date: 20220423
  Serious: Yes (Disabling)
  Sender: FDA-Public Use
  Company Number: MA-PFIZER INC-202200225622

PATIENT
  Age: 38 Year
  Sex: Female

DRUGS (2)
  1. LORBRENA [Suspect]
     Active Substance: LORLATINIB
     Dosage: 100 MG, DAILY
     Dates: start: 202110
  2. LORBRENA [Suspect]
     Active Substance: LORLATINIB
     Dosage: 75 MG DAILY + ONE-WEEK THERAPEUTIC WINDOW

REACTIONS (2)
  - Asthenia [Unknown]
  - Muscle fatigue [Unknown]
